FAERS Safety Report 24402110 (Version 1)
Quarter: 2024Q4

REPORT INFORMATION
  Report Type: Spontaneous
  Country: US (occurrence: US)
  Receive Date: 20241007
  Receipt Date: 20241007
  Transmission Date: 20250114
  Serious: Yes (Death)
  Sender: NORDIC PHARMA
  Company Number: US-NORDICGR-057572

PATIENT
  Sex: Female

DRUGS (2)
  1. METHOTREXATE [Suspect]
     Active Substance: METHOTREXATE
     Indication: Systemic scleroderma
     Route: 065
  2. PREDNISONE [Concomitant]
     Active Substance: PREDNISONE
     Indication: Systemic scleroderma
     Route: 065

REACTIONS (3)
  - Squamous cell carcinoma [Fatal]
  - Hypertransaminasaemia [Recovered/Resolved]
  - Product use in unapproved indication [Unknown]
